FAERS Safety Report 7511971-9 (Version None)
Quarter: 2011Q2

REPORT INFORMATION
  Report Type: 
  Country: None (occurrence: None)
  Receive Date: 20110531
  Receipt Date: 20110518
  Transmission Date: 20111010
  Serious: Yes (Hospitalization)
  Sender: FDA-Public Use
  Company Number: PHHY2011FR43299

PATIENT
  Sex: Female

DRUGS (12)
  1. TERCIAN [Suspect]
     Dosage: 4.5 DF, DAILY
     Dates: start: 20110404, end: 20110428
  2. LEVOTHYROXINE SODIUM [Concomitant]
     Dosage: UNK UKN, UNK
  3. TEGRETOL [Suspect]
     Dosage: 400 MG, QD
     Route: 048
     Dates: start: 20101102, end: 20110428
  4. HEPT-A-MYL [Suspect]
     Dosage: 187.8 MG, DAILY
     Dates: start: 20110409, end: 20110428
  5. RABEPRAZOLE SODIUM [Concomitant]
     Dosage: UNK UKN, UNK
  6. TERCIAN [Suspect]
     Dosage: 112.5 MG, DAILY
  7. CRESTOR [Concomitant]
     Dosage: UNK UKN, UNK
  8. FORLAX [Concomitant]
     Dosage: UNK UKN, UNK
  9. NOCTAMID [Concomitant]
  10. PROPRANOLOL [Concomitant]
     Dosage: UNK UKN, UNK
  11. LUBENTYL [Concomitant]
     Dosage: UNK UKN, UNK
  12. TIAPRIDAL [Concomitant]
     Dosage: UNK UKN, UNK
     Dates: start: 20110401, end: 20110419

REACTIONS (9)
  - PRURITUS [None]
  - NAUSEA [None]
  - HEPATITIS CHOLESTATIC [None]
  - JAUNDICE [None]
  - BLOOD BILIRUBIN INCREASED [None]
  - ALANINE AMINOTRANSFERASE INCREASED [None]
  - BLOOD ALKALINE PHOSPHATASE INCREASED [None]
  - GAMMA-GLUTAMYLTRANSFERASE INCREASED [None]
  - ASPARTATE AMINOTRANSFERASE INCREASED [None]
